FAERS Safety Report 23237627 (Version 2)
Quarter: 2024Q1

REPORT INFORMATION
  Report Type: Spontaneous
  Country: US (occurrence: US)
  Receive Date: 20231128
  Receipt Date: 20240206
  Transmission Date: 20240410
  Serious: No
  Sender: FDA-Public Use
  Company Number: US-Merz Pharmaceuticals GmbH-23-03629

PATIENT
  Age: 23 Year
  Sex: Female
  Weight: 68.03 kg

DRUGS (2)
  1. XEOMIN [Suspect]
     Active Substance: INCOBOTULINUMTOXINA
     Indication: Product used for unknown indication
     Dates: start: 20231104, end: 20231104
  2. BOTULINUM TOXIN NOS [Concomitant]
     Active Substance: BOTULINUM TOXIN NOS

REACTIONS (2)
  - Pain [Recovered/Resolved]
  - Pruritus [Recovered/Resolved]

NARRATIVE: CASE EVENT DATE: 20231101
